FAERS Safety Report 8416147-9 (Version None)
Quarter: 2012Q2

REPORT INFORMATION
  Report Type: 
  Country: None (occurrence: None)
  Receive Date: 20120606
  Receipt Date: 20120604
  Transmission Date: 20120825
  Serious: Yes (Other)
  Sender: FDA-Public Use
  Company Number: US-PFIZER INC-2012104090

PATIENT
  Age: 58 Year
  Sex: Female

DRUGS (2)
  1. CELEBREX [Suspect]
     Indication: FIBROMYALGIA
     Dosage: UNK
     Dates: start: 20000101
  2. TRAMADOL [Concomitant]
     Dosage: UNK

REACTIONS (6)
  - WEIGHT DECREASED [None]
  - DRUG INEFFECTIVE [None]
  - THERAPEUTIC RESPONSE UNEXPECTED [None]
  - GASTRIC DISORDER [None]
  - RENAL DISORDER [None]
  - LIVER DISORDER [None]
